FAERS Safety Report 16714618 (Version 2)
Quarter: 2019Q3

REPORT INFORMATION
  Report Type: Spontaneous
  Country: JP (occurrence: JP)
  Receive Date: 20190819
  Receipt Date: 20190905
  Transmission Date: 20191004
  Serious: Yes (Hospitalization, Other)
  Sender: FDA-Public Use
  Company Number: JP-AMGEN-JPNSP2019131438

PATIENT
  Age: 67 Year
  Sex: Male

DRUGS (21)
  1. CISPLATIN. [Concomitant]
     Active Substance: CISPLATIN
     Indication: LUNG ADENOCARCINOMA
     Dosage: 100 MILLIGRAM
     Route: 041
     Dates: start: 20190522, end: 20190522
  2. ALOXI [Concomitant]
     Active Substance: PALONOSETRON HYDROCHLORIDE
     Indication: PROPHYLAXIS
     Dosage: 0.75 MILLIGRAM
     Route: 042
     Dates: start: 20190522
  3. PANVITAN [ASCORBIC ACID;CALCIUM PANTOTHENATE;CYANOCOBALAMIN;ERGOCALCIF [Concomitant]
     Indication: PROPHYLAXIS
     Dosage: 1 GRAM, QD
     Route: 048
     Dates: start: 20190516
  4. CISPLATIN. [Concomitant]
     Active Substance: CISPLATIN
     Dosage: 100 MILLIGRAM
     Route: 041
     Dates: start: 20190708, end: 20190708
  5. ALIMTA [Concomitant]
     Active Substance: PEMETREXED DISODIUM
     Dosage: 660 MILLIGRAM
     Route: 041
     Dates: start: 20190613, end: 20190613
  6. FEBURIC [Concomitant]
     Active Substance: FEBUXOSTAT
     Indication: HYPERURICAEMIA
     Dosage: 10 MILLIGRAM, QD
     Route: 048
  7. DEXART [Concomitant]
     Active Substance: DEXAMETHASONE SODIUM PHOSPHATE
     Indication: PROPHYLAXIS
     Dosage: 9.9 MILLIGRAM
     Route: 042
     Dates: start: 20190522
  8. KEYTRUDA [Concomitant]
     Active Substance: PEMBROLIZUMAB
     Dosage: 200 MILLIGRAM
     Route: 041
     Dates: start: 20190613, end: 20190613
  9. KEYTRUDA [Concomitant]
     Active Substance: PEMBROLIZUMAB
     Dosage: 200 MILLIGRAM
     Route: 041
     Dates: start: 20190708, end: 20190708
  10. ELIQUIS [Concomitant]
     Active Substance: APIXABAN
     Indication: ATRIAL FIBRILLATION
     Dosage: 5 MILLIGRAM, BID
     Route: 048
  11. EMEND [Concomitant]
     Active Substance: APREPITANT
     Indication: PROPHYLAXIS
     Dosage: 80 MILLIGRAM
     Route: 048
     Dates: start: 20190522
  12. EMEND [Concomitant]
     Active Substance: APREPITANT
     Dosage: 125 MILLIGRAM
     Route: 048
     Dates: start: 20190522
  13. G-LASTA [Suspect]
     Active Substance: PEGFILGRASTIM
     Indication: COLONY STIMULATING FACTOR THERAPY
     Dosage: 3.6 MILLIGRAM
     Route: 058
     Dates: start: 20190620, end: 20190620
  14. CISPLATIN. [Concomitant]
     Active Substance: CISPLATIN
     Dosage: 100 MILLIGRAM
     Route: 041
     Dates: start: 20190613, end: 20190613
  15. G-LASTA [Suspect]
     Active Substance: PEGFILGRASTIM
     Dosage: 3.6 MILLIGRAM
     Route: 058
     Dates: start: 20190711, end: 20190711
  16. MANNITOL. [Concomitant]
     Active Substance: MANNITOL
     Indication: PROPHYLAXIS
     Dosage: 60 MILLIGRAM
     Route: 042
     Dates: start: 20190522
  17. PRIMPERAN [Concomitant]
     Active Substance: METOCLOPRAMIDE HYDROCHLORIDE
     Indication: PROPHYLAXIS
     Dosage: 10 MILLIGRAM
     Route: 042
     Dates: start: 20190522
  18. ALIMTA [Concomitant]
     Active Substance: PEMETREXED DISODIUM
     Dosage: 660 MILLIGRAM
     Route: 041
     Dates: start: 20190708, end: 20190708
  19. KEYTRUDA [Concomitant]
     Active Substance: PEMBROLIZUMAB
     Indication: LUNG ADENOCARCINOMA
     Dosage: 200 MILLIGRAM
     Route: 041
     Dates: start: 20190522, end: 20190522
  20. ALIMTA [Concomitant]
     Active Substance: PEMETREXED DISODIUM
     Indication: LUNG ADENOCARCINOMA
     Dosage: 660 MILLIGRAM
     Route: 041
     Dates: start: 20190522, end: 20190522
  21. METHYCOBAL [Concomitant]
     Active Substance: METHYLCOBALAMIN
     Indication: PROPHYLAXIS
     Dosage: 1 MILLIGRAM
     Route: 030
     Dates: start: 20190516

REACTIONS (1)
  - Anaphylactic shock [Recovered/Resolved]

NARRATIVE: CASE EVENT DATE: 20190711
